FAERS Safety Report 9183459 (Version 1)
Quarter: 2013Q1

REPORT INFORMATION
  Report Type: Spontaneous
  Country: US (occurrence: US)
  Receive Date: 20130322
  Receipt Date: 20130322
  Transmission Date: 20140127
  Serious: No
  Sender: FDA-Public Use
  Company Number: US-BRISTOL-MYERS SQUIBB COMPANY-17319179

PATIENT
  Age: 78 Year
  Sex: Female

DRUGS (10)
  1. ERBITUX [Suspect]
     Indication: COLORECTAL CANCER
     Dosage: NO OF COURSE: 4
     Dates: start: 20121213
  2. MORPHINE [Concomitant]
     Dosage: ALSO TAKEN 30MG
  3. DOXYCYCLINE [Concomitant]
  4. OMEPRAZOLE [Concomitant]
  5. DILTIAZEM CD [Concomitant]
  6. METHIMAZOLE [Concomitant]
  7. FOLIC ACID [Concomitant]
  8. MAGNESIUM [Concomitant]
  9. FUROSEMIDE [Concomitant]
  10. QUESTRAN [Concomitant]

REACTIONS (3)
  - Rash [Recovering/Resolving]
  - Dry skin [Unknown]
  - Diarrhoea [Unknown]
